FAERS Safety Report 22246113 (Version 1)
Quarter: 2023Q2

REPORT INFORMATION
  Report Type: Spontaneous
  Country: CO (occurrence: CO)
  Receive Date: 20230424
  Receipt Date: 20230424
  Transmission Date: 20230721
  Serious: Yes (Hospitalization)
  Sender: FDA-Public Use
  Company Number: CO-MEDICUREINC-2023COLIT00006

PATIENT
  Age: 72 Year
  Sex: Female

DRUGS (1)
  1. TIROFIBAN [Suspect]
     Active Substance: TIROFIBAN
     Indication: Thrombosis prophylaxis
     Route: 041

REACTIONS (5)
  - Pulmonary alveolar haemorrhage [Recovered/Resolved]
  - Ventricular hypokinesia [Recovering/Resolving]
  - Haemoptysis [Recovering/Resolving]
  - Tachypnoea [Recovering/Resolving]
  - Pneumonia [Recovering/Resolving]
